FAERS Safety Report 4519942-1 (Version None)
Quarter: 2004Q4

REPORT INFORMATION
  Report Type: 
  Country: None (occurrence: None)
  Receive Date: 20041207
  Receipt Date: 20041126
  Transmission Date: 20050328
  Serious: Yes (Hospitalization)
  Sender: FDA-Public Use
  Company Number: FR-ROCHE-387386

PATIENT
  Age: 15 Year
  Sex: Female

DRUGS (4)
  1. APRANAX [Suspect]
     Indication: DRUG USE FOR UNKNOWN INDICATION
     Route: 048
     Dates: start: 20040908, end: 20040914
  2. IODINE [Interacting]
     Indication: CONTRAST MEDIA REACTION
     Route: 042
     Dates: start: 20040914, end: 20040914
  3. DATURA [Concomitant]
     Dates: start: 20040911
  4. CANNABIS [Concomitant]
     Dates: start: 20040911

REACTIONS (8)
  - ABDOMINAL RIGIDITY [None]
  - DRUG INTERACTION [None]
  - DUODENITIS [None]
  - DYSPEPSIA [None]
  - GASTRITIS [None]
  - PROTEINURIA [None]
  - RENAL FAILURE ACUTE [None]
  - VOMITING [None]
